FAERS Safety Report 17069790 (Version 1)
Quarter: 2019Q4

REPORT INFORMATION
  Report Type: Report from Study
  Country: None (occurrence: FR)
  Receive Date: 20191125
  Receipt Date: 20191125
  Transmission Date: 20200122
  Serious: Yes (Hospitalization)
  Sender: FDA-Public Use
  Company Number: FR-ABBVIE-19K-056-2964348-00

PATIENT
  Age: 82 Year
  Sex: Male
  Weight: 74 kg

DRUGS (17)
  1. VENETOCLAX. [Suspect]
     Active Substance: VENETOCLAX
     Route: 048
     Dates: start: 20181031, end: 20181106
  2. FASTURTEC [Concomitant]
     Active Substance: RASBURICASE
     Indication: PROPHYLAXIS
     Dates: start: 20181023, end: 20181025
  3. SALBUTAMOL [Concomitant]
     Active Substance: ALBUTEROL
     Indication: COUGH
     Dates: start: 20181122, end: 20181122
  4. VENETOCLAX. [Suspect]
     Active Substance: VENETOCLAX
     Route: 048
     Dates: start: 20181107, end: 20181113
  5. VENETOCLAX. [Suspect]
     Active Substance: VENETOCLAX
     Route: 048
     Dates: start: 20190821
  6. LANSOPRAZOLE. [Concomitant]
     Active Substance: LANSOPRAZOLE
     Indication: PAIN PROPHYLAXIS
     Dates: start: 20170314
  7. KARDEGIC [Concomitant]
     Active Substance: ASPIRIN DL-LYSINE
     Indication: CORONARY ARTERY DISEASE
  8. BACTRIM [Concomitant]
     Active Substance: SULFAMETHOXAZOLE\TRIMETHOPRIM
     Indication: ANTIFUNGAL PROPHYLAXIS
     Dates: start: 20181123
  9. FASTURTEC [Concomitant]
     Active Substance: RASBURICASE
     Dates: start: 20181114, end: 20181115
  10. VENETOCLAX. [Suspect]
     Active Substance: VENETOCLAX
     Route: 048
     Dates: start: 20181121, end: 20190820
  11. NEBIVOLOL. [Concomitant]
     Active Substance: NEBIVOLOL
     Indication: CORONARY ARTERY DISEASE
  12. FUROSEMIDE. [Concomitant]
     Active Substance: FUROSEMIDE
     Indication: ISCHAEMIC CARDIOMYOPATHY
  13. VENETOCLAX. [Suspect]
     Active Substance: VENETOCLAX
     Indication: CHRONIC LYMPHOCYTIC LEUKAEMIA
     Route: 048
     Dates: start: 20181024, end: 20181030
  14. ZELITREX [Concomitant]
     Active Substance: VALACYCLOVIR HYDROCHLORIDE
     Indication: ANTIVIRAL PROPHYLAXIS
     Dates: start: 20170314
  15. FASTURTEC [Concomitant]
     Active Substance: RASBURICASE
     Dates: start: 20181107, end: 20181108
  16. FASTURTEC [Concomitant]
     Active Substance: RASBURICASE
     Dates: start: 20181121, end: 20181122
  17. VENETOCLAX. [Suspect]
     Active Substance: VENETOCLAX
     Route: 048
     Dates: start: 20181114, end: 20181120

REACTIONS (8)
  - Campylobacter gastroenteritis [Recovered/Resolved]
  - Diarrhoea [Recovered/Resolved]
  - Cough [Recovered/Resolved]
  - Diarrhoea [Recovered/Resolved]
  - Hypokalaemia [Recovered/Resolved]
  - Hyperthermia [Recovered/Resolved]
  - Hypokalaemia [Recovered/Resolved]
  - Abdominal pain [Recovered/Resolved]

NARRATIVE: CASE EVENT DATE: 20181106
